FAERS Safety Report 8473760-0 (Version None)
Quarter: 2012Q2

REPORT INFORMATION
  Report Type: 
  Country: None (occurrence: None)
  Receive Date: 20120628
  Receipt Date: 20111026
  Transmission Date: 20120825
  Serious: No
  Sender: FDA-Public Use
  Company Number: US-MYLANLABS-2011S1022080

PATIENT
  Sex: Male
  Weight: 86.18 kg

DRUGS (7)
  1. TRICOR [Concomitant]
     Indication: BLOOD CHOLESTEROL INCREASED
  2. CLOZAPINE [Suspect]
     Route: 048
     Dates: end: 20110901
  3. CLOZAPINE [Suspect]
     Indication: ANXIETY
     Route: 048
  4. CLOZAPINE [Suspect]
     Route: 048
     Dates: end: 20110901
  5. CLOZAPINE [Suspect]
     Indication: INSOMNIA
     Route: 048
  6. CLOZAPINE [Suspect]
     Route: 048
  7. CLOZAPINE [Suspect]
     Route: 048

REACTIONS (3)
  - STUPOR [None]
  - MALAISE [None]
  - LISTLESS [None]
